FAERS Safety Report 11344001 (Version 1)
Quarter: 2015Q3

REPORT INFORMATION
  Report Type: Report from Study
  Country: CN (occurrence: CN)
  Receive Date: 20150806
  Receipt Date: 20150806
  Transmission Date: 20151125
  Serious: Yes (Other)
  Sender: FDA-Public Use
  Company Number: CN-BAXALTA-2015BAX029344

PATIENT
  Age: 4 Year
  Weight: 16 kg

DRUGS (4)
  1. OCTOCOG ALFA; BAXJECT UNSPECIFIED [Suspect]
     Active Substance: ANTIHEMOPHILIC FACTOR, HUMAN RECOMBINANT
     Indication: HAEMOPHILIA
     Dosage: 500 IU, 1X A WEEK, LOW DOSAGE LONG TERM REGULAR INJECTION
     Route: 065
     Dates: start: 20140901
  2. OCTOCOG ALFA; BAXJECT UNSPECIFIED [Suspect]
     Active Substance: ANTIHEMOPHILIC FACTOR, HUMAN RECOMBINANT
     Indication: HAEMORRHAGE
  3. KOGENATE FS [Concomitant]
     Active Substance: ANTIHEMOPHILIC FACTOR, HUMAN RECOMBINANT
     Indication: HAEMOPHILIA
  4. OCTOCOG ALFA; BAXJECT UNSPECIFIED [Suspect]
     Active Substance: ANTIHEMOPHILIC FACTOR, HUMAN RECOMBINANT
     Indication: PROPHYLAXIS

REACTIONS (5)
  - Haemorrhage [Unknown]
  - Gingival bleeding [Unknown]
  - Haemarthrosis [Unknown]
  - Haemorrhage [Unknown]
  - Haemorrhage [Unknown]

NARRATIVE: CASE EVENT DATE: 201411
